FAERS Safety Report 12059423 (Version 1)
Quarter: 2016Q1

REPORT INFORMATION
  Report Type: Spontaneous
  Country: SE (occurrence: SE)
  Receive Date: 20160210
  Receipt Date: 20160210
  Transmission Date: 20160526
  Serious: Yes (Disabling, Other)
  Sender: FDA-Public Use
  Company Number: SE-WATSON-2016-02636

PATIENT
  Age: 31 Year
  Sex: Male

DRUGS (5)
  1. VENLAFAXINE (UNKNOWN) [Suspect]
     Active Substance: VENLAFAXINE HYDROCHLORIDE
     Indication: ANXIETY
     Dosage: 75 MG, DAILY
     Route: 065
  2. TRIENTINE DIHYDROCHLORIDE [Concomitant]
     Indication: PRODUCT USED FOR UNKNOWN INDICATION
     Dosage: UNK
     Route: 065
  3. VENLAFAXINE (UNKNOWN) [Suspect]
     Active Substance: VENLAFAXINE HYDROCHLORIDE
     Indication: DEPRESSION
     Dosage: 150 MG, UNK
     Route: 065
  4. SERTRALINE [Suspect]
     Active Substance: SERTRALINE HYDROCHLORIDE
     Indication: ANXIETY
     Dosage: 50 MG, DAILY
     Route: 065
  5. SERTRALINE [Suspect]
     Active Substance: SERTRALINE HYDROCHLORIDE
     Indication: DEPRESSION

REACTIONS (8)
  - Dysarthria [Recovering/Resolving]
  - Dystonia [Recovering/Resolving]
  - Action tremor [Recovering/Resolving]
  - Asthenia [Recovering/Resolving]
  - Blepharospasm [Recovering/Resolving]
  - Diplopia [Recovering/Resolving]
  - Gait disturbance [Recovering/Resolving]
  - Oromandibular dystonia [Recovering/Resolving]
